FAERS Safety Report 7885194-8 (Version None)
Quarter: 2011Q4

REPORT INFORMATION
  Report Type: 
  Country: None (occurrence: None)
  Receive Date: 20111102
  Receipt Date: 20111031
  Transmission Date: 20120403
  Serious: Yes (Other)
  Sender: FDA-Public Use
  Company Number: US-PFIZER INC-2010009224

PATIENT
  Sex: Female

DRUGS (2)
  1. ARICEPT [Concomitant]
     Indication: TREMOR
     Dosage: UNK
     Dates: start: 20010401
  2. CHANTIX [Suspect]
     Indication: SMOKING CESSATION THERAPY
     Dosage: STARTER PACK, UNK
     Route: 048
     Dates: start: 20071102, end: 20080116

REACTIONS (7)
  - SUICIDAL IDEATION [None]
  - ABNORMAL BEHAVIOUR [None]
  - HOMICIDAL IDEATION [None]
  - DEPRESSION [None]
  - MOOD ALTERED [None]
  - IMPAIRED DRIVING ABILITY [None]
  - VIOLENCE-RELATED SYMPTOM [None]
